FAERS Safety Report 23411406 (Version 1)
Quarter: 2024Q1

REPORT INFORMATION
  Report Type: Spontaneous
  Country: CN (occurrence: CN)
  Receive Date: 20240117
  Receipt Date: 20240117
  Transmission Date: 20240410
  Serious: Yes (Other)
  Sender: FDA-Public Use
  Company Number: CN-009507513-2401CHN005680

PATIENT
  Age: 80 Year
  Sex: Male

DRUGS (1)
  1. NOXAFIL [Suspect]
     Active Substance: POSACONAZOLE
     Indication: Aspergillus infection
     Dosage: 0.3 G, 16.7ML:0.3G/BOX, QD
     Route: 041
     Dates: start: 20231231, end: 20240105

REACTIONS (2)
  - Hallucination, visual [Recovering/Resolving]
  - Inappropriate schedule of product administration [Unknown]

NARRATIVE: CASE EVENT DATE: 20231231
